FAERS Safety Report 6676649-2 (Version None)
Quarter: 2010Q2

REPORT INFORMATION
  Report Type: 
  Country: None (occurrence: None)
  Receive Date: 20100412
  Receipt Date: 20100405
  Transmission Date: 20101027
  Serious: Yes (Hospitalization)
  Sender: FDA-Public Use
  Company Number: PHHO2010SG04896

PATIENT
  Sex: Male
  Weight: 50.4 kg

DRUGS (1)
  1. ICL670A ICL+DISTAB [Suspect]
     Indication: HAEMOSIDEROSIS
     Dosage: 1500 MG
     Route: 048
     Dates: start: 20090914, end: 20100330

REACTIONS (3)
  - FANCONI SYNDROME ACQUIRED [None]
  - HYPOKALAEMIA [None]
  - HYPOPHOSPHATAEMIA [None]
